FAERS Safety Report 6721840-X (Version None)
Quarter: 2010Q2

REPORT INFORMATION
  Report Type: 
  Country: None (occurrence: None)
  Receive Date: 20100512
  Receipt Date: 20100430
  Transmission Date: 20101027
  Serious: Yes (Hospitalization, Other)
  Sender: FDA-Public Use
  Company Number: US-CUBIST-2010S1000225

PATIENT
  Age: 84 Year
  Sex: Male
  Weight: 74 kg

DRUGS (7)
  1. CUBICIN [Suspect]
     Indication: STAPHYLOCOCCAL BACTERAEMIA
     Route: 042
  2. CUBICIN [Suspect]
     Route: 042
  3. VANCOMYCIN [Concomitant]
     Indication: STAPHYLOCOCCAL BACTERAEMIA
     Route: 042
  4. VANCOMYCIN [Concomitant]
     Route: 042
  5. CEFTAZIDIME [Concomitant]
     Indication: STAPHYLOCOCCAL BACTERAEMIA
     Route: 042
  6. CEFTAZIDIME [Concomitant]
  7. GENTAMICIN [Concomitant]
     Indication: STAPHYLOCOCCAL BACTERAEMIA

REACTIONS (4)
  - ANTIMICROBIAL SUSCEPTIBILITY TEST RESISTANT [None]
  - STAPHYLOCOCCAL BACTERAEMIA [None]
  - THROMBOPHLEBITIS SUPERFICIAL [None]
  - VENOUS THROMBOSIS [None]
